FAERS Safety Report 23954262 (Version 1)
Quarter: 2024Q2

REPORT INFORMATION
  Report Type: Spontaneous
  Country: US (occurrence: None)
  Receive Date: 20240609
  Receipt Date: 20240609
  Transmission Date: 20240716
  Serious: No
  Sender: FDA-Public Use
  Company Number: US-ROCHE-3349537

PATIENT
  Age: 54 Year
  Sex: Female

DRUGS (1)
  1. TECENTRIQ [Suspect]
     Active Substance: ATEZOLIZUMAB
     Indication: Lung neoplasm malignant
     Dosage: INFUSION
     Route: 041

REACTIONS (6)
  - Fall [Unknown]
  - Mental disorder [Unknown]
  - Palpitations [Unknown]
  - Skin hypopigmentation [Unknown]
  - Malaise [Unknown]
  - Poor quality sleep [Unknown]
